FAERS Safety Report 6718562-8 (Version None)
Quarter: 2010Q2

REPORT INFORMATION
  Report Type: 
  Country: None (occurrence: None)
  Receive Date: 20100510
  Receipt Date: 20100430
  Transmission Date: 20101027
  Serious: Yes (Other)
  Sender: FDA-Public Use
  Company Number: US-ABBOTT-10P-163-0642052-00

PATIENT
  Age: 61 Year
  Sex: Female

DRUGS (1)
  1. HUMIRA [Suspect]
     Indication: PSORIASIS
     Dosage: UNKNOWN STARTER DOSE
     Route: 058
     Dates: start: 20100415, end: 20100415

REACTIONS (2)
  - OXYGEN SATURATION DECREASED [None]
  - PNEUMONIA [None]
